FAERS Safety Report 9213392 (Version 1)
Quarter: 2013Q2

REPORT INFORMATION
  Report Type: Spontaneous
  Country: CL (occurrence: CL)
  Receive Date: 20130405
  Receipt Date: 20130405
  Transmission Date: 20140414
  Serious: Yes (Death, Hospitalization)
  Sender: FDA-Public Use
  Company Number: PHHY2013CL032976

PATIENT
  Age: 87 Year
  Sex: Male

DRUGS (2)
  1. EXFORGE [Suspect]
     Indication: BLOOD PRESSURE ABNORMAL
     Dosage: 1 DF, QD
     Route: 048
  2. EXFORGE [Suspect]
     Dosage: DOSE DECREASED

REACTIONS (8)
  - Pneumonia [Fatal]
  - Spinal column injury [Fatal]
  - Spinal fracture [Fatal]
  - Abdominal pain upper [Fatal]
  - Back pain [Fatal]
  - Disease complication [Fatal]
  - Feeling drunk [Recovering/Resolving]
  - Nausea [Recovering/Resolving]
